FAERS Safety Report 19850197 (Version 4)
Quarter: 2022Q1

REPORT INFORMATION
  Report Type: Spontaneous
  Country: US (occurrence: US)
  Receive Date: 20210917
  Receipt Date: 20220211
  Transmission Date: 20220423
  Serious: Yes (Hospitalization)
  Sender: FDA-Public Use
  Company Number: US-BIOGEN-2021BI01049145

PATIENT
  Age: 38 Year
  Sex: Female

DRUGS (2)
  1. TYSABRI [Suspect]
     Active Substance: NATALIZUMAB
     Indication: Multiple sclerosis
     Route: 065
     Dates: start: 20210202, end: 20211221
  2. TYSABRI [Suspect]
     Active Substance: NATALIZUMAB
     Route: 065
     Dates: start: 202012

REACTIONS (14)
  - Multiple sclerosis relapse [Unknown]
  - Cerebellar atrophy [Not Recovered/Not Resolved]
  - Bone pain [Unknown]
  - Band sensation [Unknown]
  - Nervous system disorder [Unknown]
  - Visual impairment [Unknown]
  - Diplopia [Unknown]
  - Nystagmus [Unknown]
  - Vision blurred [Unknown]
  - Abnormal sensation in eye [Unknown]
  - CSF lymphocyte count abnormal [Unknown]
  - Drug intolerance [Unknown]
  - Vertigo [Unknown]
  - Lymphocyte count increased [Unknown]

NARRATIVE: CASE EVENT DATE: 20210601
